FAERS Safety Report 11638560 (Version 2)
Quarter: 2015Q4

REPORT INFORMATION
  Report Type: Report from Study
  Country: DE (occurrence: DE)
  Receive Date: 20151016
  Receipt Date: 20151202
  Transmission Date: 20160304
  Serious: Yes (Hospitalization)
  Sender: FDA-Public Use
  Company Number: DE-ABBVIE-15K-062-1480533-00

PATIENT
  Age: 45 Year
  Sex: Male
  Weight: 84 kg

DRUGS (3)
  1. HUMIRA [Suspect]
     Active Substance: ADALIMUMAB
     Indication: ARTHRITIS ENTEROPATHIC
     Route: 058
     Dates: end: 20150708
  2. TRAMADOL. [Suspect]
     Active Substance: TRAMADOL
     Indication: PRODUCT USED FOR UNKNOWN INDICATION
     Route: 065
     Dates: start: 20140713, end: 20140714
  3. PREDNISOLONE WITH SYSTEMIC STEROIDES [Concomitant]
     Indication: CROHN^S DISEASE
     Dosage: EQUIVALENT DOSE OF 40MG PER DAY

REACTIONS (5)
  - Abscess [Unknown]
  - Bone contusion [Unknown]
  - Drug effect decreased [Unknown]
  - Crohn^s disease [Unknown]
  - Orthostatic intolerance [Recovered/Resolved]

NARRATIVE: CASE EVENT DATE: 20140714
